FAERS Safety Report 9274917 (Version 1)
Quarter: 2013Q2

REPORT INFORMATION
  Report Type: Spontaneous
  Country: GB (occurrence: None)
  Receive Date: 20130429
  Receipt Date: 20130429
  Transmission Date: 20140414
  Serious: Yes (Hospitalization, Other)
  Sender: FDA-Public Use
  Company Number: SYM-2013-03039

PATIENT
  Age: 46 Year
  Sex: Female

DRUGS (9)
  1. METRONIDAZOLE (METRONIDAZOLE) [Suspect]
     Indication: PRODUCT USED FOR UNKNOWN INDICATION
     Route: 048
  2. CARBAMAZEPINE (CARBAMAZEPINE) [Suspect]
     Indication: GRAND MAL CONVULSION
     Route: 048
  3. CEFTRIAXONE (CEFTRIAXONE) (CEFTRIAXONE) [Concomitant]
  4. DOXYCYCLINE (DOXYCYCLINE) (DOXYCYCLINE) [Concomitant]
  5. PARACETAMOL (PARACETAMOL) (PARACETAMOL) [Concomitant]
  6. CODEINE (CODEINE) (COEDEINE) [Concomitant]
  7. CEFUROXIME (CEFUROXIME) (CEFUROXIME) [Concomitant]
  8. MORPHINE SULFATE (MORPHINE SULFATE) (MORPHINE SULFATE) [Concomitant]
  9. GENTAMICIN (GENTAMICIN) (GENTAMICIN) [Concomitant]

REACTIONS (7)
  - Toxicity to various agents [None]
  - Fallopian tube cyst [None]
  - Dizziness [None]
  - Diplopia [None]
  - Confusional state [None]
  - Anticonvulsant drug level increased [None]
  - Potentiating drug interaction [None]
